FAERS Safety Report 9866650 (Version 1)
Quarter: 2014Q1

REPORT INFORMATION
  Report Type: Spontaneous
  Country: US (occurrence: US)
  Receive Date: 20140204
  Receipt Date: 20140204
  Transmission Date: 20141002
  Serious: Yes (Hospitalization)
  Sender: FDA-Public Use
  Company Number: US-BIOGENIDEC-2014BI007681

PATIENT
  Age: 64 Year
  Sex: Female

DRUGS (5)
  1. TECFIDERA [Suspect]
     Indication: MULTIPLE SCLEROSIS
     Route: 048
     Dates: start: 201310
  2. LISINOPRIL [Concomitant]
  3. BACLOFEN [Concomitant]
  4. 4-AMINOPYRIDINE [Concomitant]
  5. VITAMIN D [Concomitant]

REACTIONS (1)
  - Multiple sclerosis relapse [Unknown]
